FAERS Safety Report 24730304 (Version 1)
Quarter: 2024Q4

REPORT INFORMATION
  Report Type: Spontaneous
  Country: US (occurrence: US)
  Receive Date: 20241213
  Receipt Date: 20241213
  Transmission Date: 20250114
  Serious: No
  Sender: BRISTOL-MYERS SQUIBB COMPANY
  Company Number: US-BRISTOL-MYERS SQUIBB COMPANY-2024-193427

PATIENT
  Age: 70 Year
  Sex: Female
  Weight: 76.2 kg

DRUGS (3)
  1. ELIQUIS [Suspect]
     Active Substance: APIXABAN
     Indication: Product used for unknown indication
  2. TREPROSTINIL [Suspect]
     Active Substance: TREPROSTINIL
     Indication: Pulmonary arterial hypertension
     Dosage: DOSE - 96 NG/KG/ MIN?FREQUENCY: CONTINUOUS
     Route: 042
     Dates: start: 20210331
  3. REMODULIN [Concomitant]
     Active Substance: TREPROSTINIL
     Indication: Product used for unknown indication

REACTIONS (6)
  - Epistaxis [Unknown]
  - Sinus disorder [Unknown]
  - Headache [Unknown]
  - Blood pressure decreased [Unknown]
  - Fatigue [Unknown]
  - Rhinorrhoea [Unknown]
